FAERS Safety Report 24381209 (Version 2)
Quarter: 2024Q4

REPORT INFORMATION
  Report Type: Spontaneous
  Country: US (occurrence: US)
  Receive Date: 20241001
  Receipt Date: 20241012
  Transmission Date: 20250114
  Serious: Yes (Other)
  Sender: AMGEN
  Company Number: US-AMGEN-USASP2024190310

PATIENT
  Age: 72 Year
  Sex: Male

DRUGS (1)
  1. REPATHA [Suspect]
     Active Substance: EVOLOCUMAB
     Indication: Product used for unknown indication
     Dosage: UNK
     Route: 065
     Dates: start: 2024, end: 202409

REACTIONS (5)
  - Type 2 diabetes mellitus [Unknown]
  - Heart rate irregular [Recovered/Resolved]
  - Dyspnoea [Unknown]
  - Back pain [Unknown]
  - Nasal congestion [Unknown]

NARRATIVE: CASE EVENT DATE: 20240101
